FAERS Safety Report 7341158-4 (Version None)
Quarter: 2011Q1

REPORT INFORMATION
  Report Type: 
  Country: None (occurrence: None)
  Receive Date: 20110309
  Receipt Date: 20100319
  Transmission Date: 20110831
  Serious: Yes (Other)
  Sender: FDA-Public Use
  Company Number: B0643738A

PATIENT
  Age: 23 Year
  Sex: Female
  Weight: 169 kg

DRUGS (1)
  1. ZENTEL [Suspect]
     Indication: HELMINTHIC INFECTION
     Dosage: .4G PER DAY
     Route: 048
     Dates: start: 20100315, end: 20100315

REACTIONS (2)
  - DRUG EXPOSURE DURING PREGNANCY [None]
  - PREMATURE BABY [None]
